FAERS Safety Report 5522071-1 (Version None)
Quarter: 2007Q4

REPORT INFORMATION
  Report Type: 
  Country: None (occurrence: None)
  Receive Date: 20071115
  Receipt Date: 20071101
  Transmission Date: 20080405
  Serious: Yes (Other)
  Sender: FDA-Public Use
  Company Number: ENC200700164

PATIENT
  Age: 70 Year
  Sex: Male

DRUGS (10)
  1. ARGATROBAN [Suspect]
     Indication: CEREBRAL INFARCTION
     Dosage: 60 MG, QD, INTRAVENOUS; 20 MG, QD, INTRAVENOUS
     Route: 042
     Dates: start: 20070602, end: 20070603
  2. ARGATROBAN [Suspect]
     Indication: CEREBRAL INFARCTION
     Dosage: 60 MG, QD, INTRAVENOUS; 20 MG, QD, INTRAVENOUS
     Route: 042
     Dates: start: 20070604, end: 20070606
  3. FLUMARIN /00963302/(FLOMOXEF SODIUM) [Suspect]
     Indication: PNEUMONIA
     Dosage: 2 G, QD, INTRAVENOUS
     Route: 042
     Dates: start: 20070601, end: 20070606
  4. CLINDAMYCIN(CLINDAMYCIN) [Suspect]
     Indication: PNEUMONIA
     Dosage: 1200 MG, QD, INTRAVENOUS
     Route: 042
     Dates: start: 20070601, end: 20070606
  5. ZANTAC 150 [Concomitant]
  6. RADICUT (EDARAVONE) [Concomitant]
  7. GRTPA (ALTEPLASE) [Concomitant]
  8. ASPIRIN [Concomitant]
  9. GAMOFA (FAMOTIDINE) [Concomitant]
  10. WARFARIN SODIUM [Concomitant]

REACTIONS (6)
  - ALANINE AMINOTRANSFERASE INCREASED [None]
  - ASPARTATE AMINOTRANSFERASE INCREASED [None]
  - HAEMATOCRIT DECREASED [None]
  - HAEMOGLOBIN DECREASED [None]
  - HAEMORRHAGIC CEREBRAL INFARCTION [None]
  - HEPATIC FUNCTION ABNORMAL [None]
